FAERS Safety Report 6368939-8 (Version None)
Quarter: 2009Q3

REPORT INFORMATION
  Report Type: 
  Country: None (occurrence: None)
  Receive Date: 20090922
  Receipt Date: 20090908
  Transmission Date: 20100115
  Serious: Yes (Other)
  Sender: FDA-Public Use
  Company Number: US-PFIZER INC-2009268259

PATIENT
  Sex: Female
  Weight: 90.703 kg

DRUGS (4)
  1. GEODON [Suspect]
     Dosage: UNK
     Dates: start: 20061231
  2. ZOLOFT [Concomitant]
  3. TOPAMAX [Concomitant]
  4. LEVOTHYROXINE [Concomitant]

REACTIONS (1)
  - HALLUCINATION, AUDITORY [None]
